FAERS Safety Report 9294816 (Version 1)
Quarter: 2013Q1

REPORT INFORMATION
  Report Type: Spontaneous
  Country: US (occurrence: None)
  Receive Date: 20121227
  Receipt Date: 20121227
  Transmission Date: 20140127
  Serious: Yes (Hospitalization)
  Sender: FDA-Public Use
  Company Number: PHEH2012US006245

PATIENT
  Age: 44 Year
  Sex: Male

DRUGS (1)
  1. MYFORTIC (MYCOPHENOLIC ACID) TABLET [Suspect]
     Indication: RENAL TRANSPLANT
     Route: 048

REACTIONS (2)
  - Hepatic enzyme abnormal [None]
  - Diarrhoea [None]
